FAERS Safety Report 18473813 (Version 1)
Quarter: 2020Q4

REPORT INFORMATION
  Report Type: Spontaneous
  Country: US (occurrence: US)
  Receive Date: 20201106
  Receipt Date: 20201106
  Transmission Date: 20210114
  Serious: Yes (Death, Hospitalization, Other)
  Sender: FDA-Public Use
  Company Number: US-BRISTOL-MYERS SQUIBB COMPANY-BMS-2020-089550

PATIENT
  Age: 70 Year
  Sex: Male
  Weight: 72.58 kg

DRUGS (2)
  1. OPDIVO [Suspect]
     Active Substance: NIVOLUMAB
     Indication: RENAL CANCER STAGE IV
     Dosage: ONCE, Q3WK
     Route: 042
     Dates: start: 20200928
  2. YERVOY [Suspect]
     Active Substance: IPILIMUMAB
     Indication: RENAL CANCER STAGE IV
     Dosage: ONCE, Q3WK
     Route: 042
     Dates: start: 20200928

REACTIONS (2)
  - Myasthenia gravis [Fatal]
  - Myocarditis [Fatal]

NARRATIVE: CASE EVENT DATE: 202010
